FAERS Safety Report 18385866 (Version 2)
Quarter: 2020Q4

REPORT INFORMATION
  Report Type: Spontaneous
  Country: US (occurrence: US)
  Receive Date: 20201015
  Receipt Date: 20201112
  Transmission Date: 20210114
  Serious: No
  Sender: FDA-Public Use
  Company Number: US-APOTEX-2020AP018813

PATIENT
  Sex: Female

DRUGS (1)
  1. CLEAR NICOTINE PATCH [Suspect]
     Active Substance: NICOTINE
     Indication: SMOKING CESSATION THERAPY
     Dosage: UNK, QD (24 HOURS)
     Route: 062
     Dates: start: 20200522

REACTIONS (5)
  - Product dispensing issue [Unknown]
  - Cardiac disorder [Unknown]
  - Illness [Unknown]
  - Nightmare [Unknown]
  - Drug ineffective [Unknown]
